FAERS Safety Report 7258805-8 (Version None)
Quarter: 2011Q1

REPORT INFORMATION
  Report Type: 
  Country: None (occurrence: None)
  Receive Date: 20110129
  Receipt Date: 20100527
  Transmission Date: 20110831
  Serious: No
  Sender: FDA-Public Use
  Company Number: US-ABBOTT-10P-163-0647612-00

PATIENT
  Age: 32 Year
  Sex: Female

DRUGS (12)
  1. IMODIUM [Concomitant]
     Indication: PRODUCT USED FOR UNKNOWN INDICATION
     Route: 048
  2. TYLENOL-500 [Concomitant]
     Indication: PRODUCT USED FOR UNKNOWN INDICATION
     Route: 048
  3. IMURAN [Concomitant]
     Indication: CROHN'S DISEASE
     Route: 048
  4. CALCIUM W/VITAMIN D [Concomitant]
     Indication: PRODUCT USED FOR UNKNOWN INDICATION
     Route: 048
  5. PRILOSEC [Concomitant]
     Indication: PRODUCT USED FOR UNKNOWN INDICATION
     Route: 048
  6. MULTI-VITAMIN [Concomitant]
     Indication: PRODUCT USED FOR UNKNOWN INDICATION
     Route: 048
  7. LISINOPRIL [Concomitant]
     Indication: PRODUCT USED FOR UNKNOWN INDICATION
  8. HUMIRA [Suspect]
     Indication: CROHN'S DISEASE
     Dates: start: 20100511
  9. SPRINTEC [Concomitant]
     Indication: CONTRACEPTION
     Route: 048
  10. ASACOL [Concomitant]
     Indication: CROHN'S DISEASE
     Route: 048
  11. IRON [Concomitant]
     Indication: PRODUCT USED FOR UNKNOWN INDICATION
     Route: 048
  12. COMPAZINE [Concomitant]
     Indication: NAUSEA

REACTIONS (1)
  - THROAT IRRITATION [None]
